FAERS Safety Report 4897239-8 (Version None)
Quarter: 2006Q1

REPORT INFORMATION
  Report Type: 
  Country: None (occurrence: None)
  Receive Date: 20060127
  Receipt Date: 20060106
  Transmission Date: 20060701
  Serious: Yes (Hospitalization)
  Sender: FDA-Public Use
  Company Number: US_0509121808

PATIENT
  Sex: Female
  Weight: 149.7 kg

DRUGS (1)
  1. ZYPREXA [Suspect]
     Dosage: 5 MG, DAILY (1/D), ORAL
     Route: 048
     Dates: start: 20020101, end: 20050101

REACTIONS (9)
  - ABDOMINAL PAIN UPPER [None]
  - ASTHENIA [None]
  - DIABETES MELLITUS [None]
  - HEADACHE [None]
  - LIMB DISCOMFORT [None]
  - TREMOR [None]
  - VAGINAL HAEMORRHAGE [None]
  - VISION BLURRED [None]
  - VISUAL DISTURBANCE [None]
